FAERS Safety Report 16811461 (Version 1)
Quarter: 2019Q3

REPORT INFORMATION
  Report Type: Spontaneous
  Country: US (occurrence: US)
  Receive Date: 20190916
  Receipt Date: 20190916
  Transmission Date: 20191005
  Serious: Yes (Other)
  Sender: FDA-Public Use
  Company Number: US-SA-2019SA251490

PATIENT
  Age: 40 Year
  Sex: Female
  Weight: 56.3 kg

DRUGS (1)
  1. AUBAGIO [Suspect]
     Active Substance: TERIFLUNOMIDE
     Indication: MULTIPLE SCLEROSIS
     Dosage: UNK
     Dates: start: 20170429, end: 20190410

REACTIONS (11)
  - Depression [Unknown]
  - Asthenia [Unknown]
  - Hypertension [Unknown]
  - Malaise [Unknown]
  - Constipation [Unknown]
  - Bladder disorder [Unknown]
  - Tearfulness [Unknown]
  - Fatigue [Unknown]
  - Multiple sclerosis relapse [Unknown]
  - Irritability [Unknown]
  - Stress [Unknown]

NARRATIVE: CASE EVENT DATE: 20190405
